FAERS Safety Report 10402814 (Version 1)
Quarter: 2014Q3

REPORT INFORMATION
  Report Type: Spontaneous
  Country: US (occurrence: None)
  Receive Date: 20140821
  Receipt Date: 20140821
  Transmission Date: 20150326
  Serious: Yes (Other)
  Sender: FDA-Public Use
  Company Number: None

PATIENT
  Age: 66 Year
  Sex: Female
  Weight: 66.23 kg

DRUGS (1)
  1. CEPHALEXIN 500 MG LUPIN [Suspect]
     Active Substance: CEPHALEXIN
     Indication: INFECTION PROPHYLAXIS
     Dosage: 14 PILLS  TWICE DAILY TAKEN BY MOUTH
     Route: 048
     Dates: start: 20140807, end: 20140811

REACTIONS (5)
  - Pruritus [None]
  - Rash [None]
  - Blister [None]
  - Peripheral swelling [None]
  - Burning sensation [None]

NARRATIVE: CASE EVENT DATE: 20140807
